FAERS Safety Report 17145019 (Version 1)
Quarter: 2019Q4

REPORT INFORMATION
  Report Type: Report from Study
  Country: US (occurrence: US)
  Receive Date: 20191212
  Receipt Date: 20191212
  Transmission Date: 20200122
  Serious: Yes (Other)
  Sender: FDA-Public Use
  Company Number: US-BIOGEN-2019BI00816701

PATIENT
  Sex: Female

DRUGS (1)
  1. TECFIDERA [Suspect]
     Active Substance: DIMETHYL FUMARATE
     Indication: MULTIPLE SCLEROSIS
     Route: 048
     Dates: start: 20170921, end: 20191119

REACTIONS (5)
  - Drug ineffective [Recovered/Resolved]
  - Scar [Unknown]
  - Renal impairment [Not Recovered/Not Resolved]
  - Haemorrhage [Recovered/Resolved]
  - Acne [Recovered/Resolved]
